FAERS Safety Report 8561476-1 (Version None)
Quarter: 2012Q3

REPORT INFORMATION
  Report Type: 
  Country: None (occurrence: None)
  Receive Date: 20120802
  Receipt Date: 20120723
  Transmission Date: 20120928
  Serious: Yes (Hospitalization, Disabling, Other)
  Sender: FDA-Public Use
  Company Number: US-009507513-1205USA02883

PATIENT

DRUGS (1)
  1. FOSAMAX [Suspect]
     Indication: OSTEITIS DEFORMANS
     Route: 048
     Dates: start: 19960101

REACTIONS (31)
  - MYOCARDIAL INFARCTION [None]
  - OSTEOPENIA [None]
  - ABDOMINAL DISCOMFORT [None]
  - OSTEOPOROSIS [None]
  - HYSTERECTOMY [None]
  - URINARY TRACT INFECTION [None]
  - FATIGUE [None]
  - DEPRESSION [None]
  - HYPOACUSIS [None]
  - HYPERLIPIDAEMIA [None]
  - CONSTIPATION [None]
  - GASTROOESOPHAGEAL REFLUX DISEASE [None]
  - THYROIDECTOMY [None]
  - FOOT OPERATION [None]
  - LEFT ATRIAL DILATATION [None]
  - HYPONATRAEMIA [None]
  - SPINAL OSTEOARTHRITIS [None]
  - LOW TURNOVER OSTEOPATHY [None]
  - DEVICE FAILURE [None]
  - NASAL SEPTAL OPERATION [None]
  - ELECTROCARDIOGRAM POOR R-WAVE PROGRESSION [None]
  - AMNESIA [None]
  - PLEURAL FIBROSIS [None]
  - FEMUR FRACTURE [None]
  - OSTEOARTHRITIS [None]
  - LUNG NEOPLASM [None]
  - CATARACT OPERATION [None]
  - SINUS TACHYCARDIA [None]
  - CELLULITIS [None]
  - HALLUCINATION [None]
  - PLEURAL EFFUSION [None]
